FAERS Safety Report 5103546-6 (Version None)
Quarter: 2006Q3

REPORT INFORMATION
  Report Type: 
  Country: None (occurrence: None)
  Receive Date: 20060913
  Receipt Date: 20060904
  Transmission Date: 20061208
  Serious: Yes (Life-Threatening, Hospitalization, Disabling, Other)
  Sender: FDA-Public Use
  Company Number: GB-JNJFOC-20060900650

PATIENT
  Age: 38 Year
  Sex: Female
  Weight: 63 kg

DRUGS (3)
  1. TRINOVUM [Suspect]
     Indication: CONTRACEPTION
     Route: 048
     Dates: start: 20050713, end: 20051005
  2. BECLOMETHASONE DIPROPIONATE [Concomitant]
     Indication: ASTHMA
     Route: 055
  3. ALBUTEROL SPIROS [Concomitant]
     Indication: ASTHMA
     Route: 055

REACTIONS (2)
  - CAVERNOUS SINUS THROMBOSIS [None]
  - CONVULSION [None]
